FAERS Safety Report 5416583-9 (Version None)
Quarter: 2007Q3

REPORT INFORMATION
  Report Type: 
  Country: None (occurrence: None)
  Receive Date: 20070814
  Receipt Date: 20070814
  Transmission Date: 20080115
  Serious: Yes (Other)
  Sender: FDA-Public Use
  Company Number: None

PATIENT
  Sex: Female
  Weight: 120.2032 kg

DRUGS (1)
  1. MIRENA [Suspect]
     Indication: CONTRACEPTION
     Dosage: 1 INSERTION INTRA-UTERI
     Route: 015
     Dates: start: 20070307, end: 20070721

REACTIONS (6)
  - ABDOMINAL PAIN [None]
  - FATIGUE [None]
  - INTRA-UTERINE CONTRACEPTIVE DEVICE EXPELLED [None]
  - MIGRAINE [None]
  - NAUSEA [None]
  - WEIGHT INCREASED [None]
